FAERS Safety Report 9109592 (Version 1)
Quarter: 2013Q1

REPORT INFORMATION
  Report Type: Spontaneous
  Country: US (occurrence: US)
  Receive Date: 20130222
  Receipt Date: 20130222
  Transmission Date: 20140127
  Serious: No
  Sender: FDA-Public Use
  Company Number: US-PFIZER INC-2013064730

PATIENT
  Age: 50 Year
  Sex: Male
  Weight: 88.44 kg

DRUGS (3)
  1. VIAGRA [Suspect]
     Indication: ERECTILE DYSFUNCTION
     Dosage: 25 MG, AS NEEDED
     Route: 048
     Dates: start: 20130218
  2. PHENOBARBITAL [Concomitant]
     Indication: CONVULSION
     Dosage: 64.8 MG, 3X/DAY
  3. CLONAZEPAM [Concomitant]
     Dosage: 2 MG, UNK

REACTIONS (1)
  - Drug ineffective [Unknown]
